FAERS Safety Report 8453341 (Version 11)
Quarter: 2012Q4

REPORT INFORMATION
  Report Type: 
  Country: US (occurrence: US)
  Receive Date: 20120312
  Receipt Date: 20121030
  Transmission Date: 20130627
  Serious: Yes (Other)
  Sender: FDA-Public Use
  Company Number: PHEH2012US004287

PATIENT
  Sex: Female
  Weight: 55.33 kg

DRUGS (2)
  1. TASIGNA [Suspect]
     Indication: CHRONIC MYELOID LEUKAEMIA
     Dosage: 300 mg, BID
     Route: 048
     Dates: start: 20120215, end: 201202
  2. TASIGNA [Suspect]
     Dosage: 150 mg, BID
     Route: 048

REACTIONS (20)
  - Food allergy [Unknown]
  - Abdominal pain upper [Unknown]
  - Pneumonia [Unknown]
  - Epistaxis [Recovered/Resolved]
  - Cholelithiasis [Unknown]
  - Acute abdomen [Recovered/Resolved]
  - Dental caries [Unknown]
  - Toothache [Unknown]
  - Tooth discolouration [Unknown]
  - Liver function test abnormal [Unknown]
  - Nasopharyngitis [Unknown]
  - Chest pain [Unknown]
  - White blood cell count decreased [Unknown]
  - Platelet count decreased [Unknown]
  - Abdominal pain [Unknown]
  - Nausea [Recovered/Resolved]
  - Flatulence [Unknown]
  - Weight decreased [Unknown]
  - Fatigue [Unknown]
  - Uveitis [Unknown]
